FAERS Safety Report 9855719 (Version 1)
Quarter: 2014Q1

REPORT INFORMATION
  Report Type: Spontaneous
  Country: US (occurrence: US)
  Receive Date: 20140130
  Receipt Date: 20140130
  Transmission Date: 20141002
  Serious: Yes (Other)
  Sender: FDA-Public Use
  Company Number: US-009507513-1401USA012045

PATIENT
  Sex: Female

DRUGS (2)
  1. ALENDRONATE SODIUM [Suspect]
     Indication: OSTEOPOROSIS
     Dosage: UNK
     Route: 048
     Dates: start: 2002
  2. ACTONEL [Suspect]
     Indication: OSTEOPOROSIS
     Dosage: UNK
     Dates: start: 2002

REACTIONS (1)
  - Femur fracture [Unknown]
